FAERS Safety Report 8813695 (Version 6)
Quarter: 2016Q2

REPORT INFORMATION
  Report Type: Spontaneous
  Country: US (occurrence: US)
  Receive Date: 20120928
  Receipt Date: 20160516
  Transmission Date: 20160815
  Serious: Yes (Disabling)
  Sender: FDA-Public Use
  Company Number: US-ASTRAZENECA-2012SE74437

PATIENT
  Age: 50 Year
  Sex: Male
  Weight: 117.9 kg

DRUGS (31)
  1. CRESTOR [Suspect]
     Active Substance: ROSUVASTATIN CALCIUM
     Indication: BLOOD CHOLESTEROL INCREASED
     Route: 048
     Dates: start: 2002
  2. ACTOS [Concomitant]
     Active Substance: PIOGLITAZONE HYDROCHLORIDE
     Dates: start: 20100111, end: 2013
  3. GLYBURIDE. [Concomitant]
     Active Substance: GLYBURIDE
     Dates: end: 2013
  4. GABAPENTIN. [Concomitant]
     Active Substance: GABAPENTIN
     Dates: start: 20101019
  5. HCTZ [Concomitant]
     Active Substance: HYDROCHLOROTHIAZIDE
     Dates: start: 20131202
  6. GLYBURIDE-METFORMIN [Concomitant]
     Dosage: 5-500 MG
     Dates: start: 20100111
  7. EXFORGE [Concomitant]
     Active Substance: AMLODIPINE BESYLATE\VALSARTAN
     Dosage: 5 MG-160 MG, DAILY
     Route: 048
     Dates: start: 20131210
  8. CRESTOR [Suspect]
     Active Substance: ROSUVASTATIN CALCIUM
     Indication: BLOOD CHOLESTEROL INCREASED
     Route: 048
     Dates: start: 200909, end: 2014
  9. CRESTOR [Suspect]
     Active Substance: ROSUVASTATIN CALCIUM
     Indication: BLOOD CHOLESTEROL INCREASED
     Route: 048
     Dates: start: 20100111
  10. ATENOLOL. [Concomitant]
     Active Substance: ATENOLOL
     Dates: start: 20120314, end: 2015
  11. LANTUS [Concomitant]
     Active Substance: INSULIN GLARGINE
     Dates: start: 2014, end: 2015
  12. ALTACE [Concomitant]
     Active Substance: RAMIPRIL
     Dates: start: 20100111
  13. FUROSEMIDE. [Concomitant]
     Active Substance: FUROSEMIDE
     Dates: start: 20100211, end: 2015
  14. LOSARTAN. [Concomitant]
     Active Substance: LOSARTAN
     Dates: start: 2014, end: 2015
  15. ASPIRIN. [Concomitant]
     Active Substance: ASPIRIN
     Dates: start: 2014, end: 2015
  16. JANUVIA [Concomitant]
     Active Substance: SITAGLIPTIN PHOSPHATE
     Dates: start: 20120313, end: 2013
  17. IMIPRAMINE HYDROCHLORIDE. [Concomitant]
     Active Substance: IMIPRAMINE HYDROCHLORIDE
     Dates: start: 20100211
  18. VITAMIN D2 [Concomitant]
     Active Substance: ERGOCALCIFEROL
     Dates: start: 20110306
  19. CRESTOR [Suspect]
     Active Substance: ROSUVASTATIN CALCIUM
     Indication: BLOOD CHOLESTEROL INCREASED
     Route: 048
     Dates: start: 200811
  20. ATORVASTATIN CALCIUM. [Concomitant]
     Active Substance: ATORVASTATIN CALCIUM
     Dates: start: 20120313, end: 20150818
  21. CLONAZEPAM. [Concomitant]
     Active Substance: CLONAZEPAM
     Dates: start: 20110518
  22. SEROQUEL [Concomitant]
     Active Substance: QUETIAPINE FUMARATE
     Dates: start: 2014, end: 2015
  23. WELLBUTRIN XL [Concomitant]
     Active Substance: BUPROPION HYDROCHLORIDE
     Dates: start: 20100112
  24. TRADJENTA [Concomitant]
     Active Substance: LINAGLIPTIN
     Dates: start: 20111216
  25. PANTOPRAZOLE SODIUM. [Concomitant]
     Active Substance: PANTOPRAZOLE SODIUM
     Dates: start: 20120220
  26. GEODON [Concomitant]
     Active Substance: ZIPRASIDONE HYDROCHLORIDE\ZIPRASIDONE MESYLATE
     Dates: start: 20101116, end: 2013
  27. ZOLPIDEM TARTRATE. [Concomitant]
     Active Substance: ZOLPIDEM TARTRATE
     Dates: start: 20100112
  28. DILTIAZEM [Concomitant]
     Active Substance: DILTIAZEM
     Dates: start: 20100111
  29. CRESTOR [Suspect]
     Active Substance: ROSUVASTATIN CALCIUM
     Indication: BLOOD CHOLESTEROL INCREASED
     Route: 048
     Dates: start: 20120216
  30. NEXIUM [Concomitant]
     Active Substance: ESOMEPRAZOLE MAGNESIUM
     Indication: DYSPEPSIA
     Dates: start: 20100111, end: 201202
  31. IBUPROFEN. [Concomitant]
     Active Substance: IBUPROFEN
     Dates: start: 20100111

REACTIONS (11)
  - Coronary artery disease [Unknown]
  - Diabetes mellitus [Not Recovered/Not Resolved]
  - Dyspepsia [Unknown]
  - Obesity [Not Recovered/Not Resolved]
  - Blood triglycerides increased [Not Recovered/Not Resolved]
  - Cardiomyopathy [Unknown]
  - Hypertension [Unknown]
  - Cardiac failure congestive [Unknown]
  - Arrhythmia [Unknown]
  - Cardiovascular disorder [Unknown]
  - Skull fracture [Unknown]

NARRATIVE: CASE EVENT DATE: 2004
